FAERS Safety Report 11591519 (Version 1)
Quarter: 2015Q4

REPORT INFORMATION
  Report Type: Spontaneous
  Country: SE (occurrence: SE)
  Receive Date: 20151005
  Receipt Date: 20151005
  Transmission Date: 20160304
  Serious: No
  Sender: FDA-Public Use
  Company Number: SE-NOVEN PHARMACEUTICALS, INC.-14SE013015

PATIENT
  Sex: Female

DRUGS (1)
  1. ESTRADIOL/NORETHINDRONE ACETATE [Suspect]
     Active Substance: ESTRADIOL\NORETHINDRONE ACETATE
     Indication: PRODUCT USED FOR UNKNOWN INDICATION
     Route: 062

REACTIONS (6)
  - Drug prescribing error [Unknown]
  - Haemorrhage [Unknown]
  - Hypothyroidism [Unknown]
  - Skin irritation [Unknown]
  - Wrong technique in product usage process [Unknown]
  - Insomnia [Unknown]
